FAERS Safety Report 5707960-7 (Version None)
Quarter: 2008Q2

REPORT INFORMATION
  Report Type: 
  Country: None (occurrence: None)
  Receive Date: 20080417
  Receipt Date: 20080407
  Transmission Date: 20081010
  Serious: Yes (Other)
  Sender: FDA-Public Use
  Company Number: PHHY2008CA05228

PATIENT

DRUGS (1)
  1. RASILEZ [Suspect]

REACTIONS (3)
  - INFLUENZA [None]
  - MYALGIA [None]
  - THROMBOPHLEBITIS [None]
